FAERS Safety Report 8790336 (Version 1)
Quarter: 2012Q4

REPORT INFORMATION
  Report Type: 
  Country: ES (occurrence: ES)
  Receive Date: 20120917
  Receipt Date: 20120917
  Transmission Date: 20130627
  Serious: Yes (Other)
  Sender: FDA-Public Use
  Company Number: ES-GENZYME-THYM-1003411

PATIENT
  Age: 42 Year
  Sex: Male

DRUGS (5)
  1. THYMOGLOBULINE [Suspect]
     Indication: RENAL TRANSPLANT
     Dosage: UNK, once
     Route: 042
     Dates: start: 20120103, end: 20120103
  2. ANECTINE [Suspect]
     Indication: RENAL TRANSPLANT
     Dosage: UNK, once
     Route: 042
     Dates: start: 20120103, end: 20120103
  3. TOBRAMYCIN [Suspect]
     Indication: PRODUCT USED FOR UNKNOWN INDICATION
     Dosage: UNK, once
     Route: 042
     Dates: start: 20120103, end: 20120103
  4. FENTANYL [Suspect]
     Indication: PRODUCT USED FOR UNKNOWN INDICATION
     Dosage: 150 mcg, once
     Route: 042
     Dates: start: 20120103, end: 20120103
  5. PROPOFOL [Suspect]
     Indication: PRODUCT USED FOR UNKNOWN INDICATION
     Dosage: UNK, once
     Route: 042
     Dates: start: 20120103, end: 20120103

REACTIONS (1)
  - Pancreatitis acute [Recovered/Resolved]
